FAERS Safety Report 23495498 (Version 1)
Quarter: 2024Q1

REPORT INFORMATION
  Report Type: Report from Study
  Country: IT (occurrence: IT)
  Receive Date: 20240207
  Receipt Date: 20240207
  Transmission Date: 20240409
  Serious: Yes (Other)
  Sender: FDA-Public Use
  Company Number: None

PATIENT
  Age: 47 Year
  Sex: Female

DRUGS (5)
  1. LORAZEPAM [Suspect]
     Active Substance: LORAZEPAM
     Dosage: UNK
     Route: 048
     Dates: start: 20230117
  2. OLANZAPINE [Concomitant]
     Active Substance: OLANZAPINE
     Dosage: 10 MG
  3. PREGABALIN [Concomitant]
     Active Substance: PREGABALIN
     Dosage: 150 MG
  4. LEVOTHYROXINE SODIUM [Concomitant]
     Active Substance: LEVOTHYROXINE SODIUM
     Dosage: 75 MG
  5. RISPERIDONE [Concomitant]
     Active Substance: RISPERIDONE
     Dosage: 40 DROP, 1X/DAY

REACTIONS (3)
  - Loss of consciousness [Recovered/Resolved]
  - Syncope [Recovered/Resolved]
  - Toxicity to various agents [Recovered/Resolved]

NARRATIVE: CASE EVENT DATE: 20230117
